FAERS Safety Report 5014188-5 (Version None)
Quarter: 2006Q2

REPORT INFORMATION
  Report Type: 
  Country: None (occurrence: None)
  Receive Date: 20060414
  Receipt Date: 20051218
  Transmission Date: 20061013
  Serious: No
  Sender: FDA-Public Use
  Company Number: 2005SP004452

PATIENT
  Age: 83 Year
  Sex: Male
  Weight: 77.1115 kg

DRUGS (4)
  1. LUNESTA [Suspect]
     Indication: INSOMNIA
     Dosage: 3 MG;HS;ORAL
     Route: 048
     Dates: start: 20050501, end: 20060201
  2. LEXAPRO [Suspect]
     Indication: DEPRESSION
     Dates: start: 20051101, end: 20051101
  3. SIMVASTATIN [Concomitant]
  4. MULTIVITAMIN [Concomitant]

REACTIONS (3)
  - DEPRESSION [None]
  - DRUG EFFECT DECREASED [None]
  - HANGOVER [None]
